FAERS Safety Report 13383672 (Version 3)
Quarter: 2018Q2

REPORT INFORMATION
  Report Type: Spontaneous
  Country: IT (occurrence: IT)
  Receive Date: 20170329
  Receipt Date: 20180430
  Transmission Date: 20180711
  Serious: Yes (Other)
  Sender: FDA-Public Use
  Company Number: PHHY2017IT043374

PATIENT
  Age: 42 Year
  Sex: Female

DRUGS (4)
  1. SEROQUEL [Suspect]
     Active Substance: QUETIAPINE FUMARATE
     Indication: INTENTIONAL SELF-INJURY
     Dosage: 4 DF, TOTAL (200 MG)
     Route: 048
     Dates: start: 20161206, end: 20161206
  2. LORAZEPAM. [Suspect]
     Active Substance: LORAZEPAM
     Indication: INTENTIONAL SELF-INJURY
     Dosage: 7.5 MG, ONCE/SINGLE
     Route: 048
  3. VALDORM (FLURAZEPAM HYDROCHLORIDE) [Suspect]
     Active Substance: FLURAZEPAM HYDROCHLORIDE
     Indication: INTENTIONAL SELF-INJURY
     Dosage: 3 DF, TOTAL (30MG)
     Route: 048
  4. LORAZEPAM. [Suspect]
     Active Substance: LORAZEPAM
     Dosage: 7.5 MG, TOTAL
     Route: 048
     Dates: start: 20161206, end: 20161206

REACTIONS (2)
  - Intentional self-injury [Unknown]
  - Drug abuse [Unknown]

NARRATIVE: CASE EVENT DATE: 20161206
